FAERS Safety Report 21444114 (Version 2)
Quarter: 2025Q4

REPORT INFORMATION
  Report Type: Spontaneous
  Country: JP (occurrence: JP)
  Receive Date: 20221012
  Receipt Date: 20251204
  Transmission Date: 20260117
  Serious: Yes (Death)
  Sender: JOHNSON AND JOHNSON
  Company Number: JP-JNJFOC-20221013211

PATIENT

DRUGS (1)
  1. UPTRAVI [Suspect]
     Active Substance: SELEXIPAG
     Indication: Pulmonary arterial hypertension
     Route: 048

REACTIONS (4)
  - Systemic scleroderma [Fatal]
  - Interstitial lung disease [Fatal]
  - Pulmonary veno-occlusive disease [Fatal]
  - Dyspnoea [Unknown]
